FAERS Safety Report 22386408 (Version 1)
Quarter: 2023Q2

REPORT INFORMATION
  Report Type: Spontaneous
  Country: CH (occurrence: CH)
  Receive Date: 20230531
  Receipt Date: 20230531
  Transmission Date: 20230722
  Serious: Yes (Other)
  Sender: FDA-Public Use
  Company Number: None

PATIENT
  Age: 48 Year
  Sex: Female
  Weight: 55 kg

DRUGS (6)
  1. OCREVUS [Suspect]
     Active Substance: OCRELIZUMAB
     Indication: Relapsing-remitting multiple sclerosis
     Dosage: 600 MG ADMINISTERED IN TWO SEPARATE INFUSIONS OF 300 MG EACH, TAKING PLACE 1AT AN INTERVAL
     Route: 041
     Dates: start: 20220522, end: 20220608
  2. GILENYA [Suspect]
     Active Substance: FINGOLIMOD HYDROCHLORIDE
     Indication: Relapsing-remitting multiple sclerosis
     Dosage: (PROBLEM DOSE STANDARD 0.5 MG 1X/DAY
     Route: 048
     Dates: start: 2017, end: 2021
  3. MENAQUINONE 6 [Concomitant]
     Active Substance: MENAQUINONE 6
  4. VITAMIN C [Concomitant]
     Active Substance: ASCORBIC ACID
  5. GINKGO [Concomitant]
     Active Substance: GINKGO
  6. VITAMIN D3 [Concomitant]
     Active Substance: CHOLECALCIFEROL
     Dosage: 4000 UI/ML

REACTIONS (2)
  - Cervical dysplasia [Recovered/Resolved]
  - Lymphopenia [Not Recovered/Not Resolved]

NARRATIVE: CASE EVENT DATE: 20200101
